FAERS Safety Report 4624376-5 (Version None)
Quarter: 2005Q1

REPORT INFORMATION
  Report Type: 
  Country: None (occurrence: None)
  Receive Date: 20050330
  Receipt Date: 20050330
  Transmission Date: 20050727
  Serious: Yes (Other)
  Sender: FDA-Public Use
  Company Number: None

PATIENT

DRUGS (1)
  1. BISOPROLOL/HCTZ  5/6.25 MG [Suspect]
     Indication: HYPERTENSION
     Dosage: ONE DAILY
     Dates: start: 20050127

REACTIONS (2)
  - GINGIVAL SWELLING [None]
  - ORAL PAIN [None]
